FAERS Safety Report 6200009-1 (Version None)
Quarter: 2009Q2

REPORT INFORMATION
  Report Type: 
  Country: None (occurrence: None)
  Receive Date: 20090522
  Receipt Date: 20070308
  Transmission Date: 20091009
  Serious: Yes (Hospitalization)
  Sender: FDA-Public Use
  Company Number: DE-MERCK-0703DEU00028

PATIENT
  Sex: Female

DRUGS (5)
  1. EMEND [Suspect]
     Indication: PROPHYLAXIS OF NAUSEA AND VOMITING
     Route: 048
     Dates: start: 20060908, end: 20060910
  2. [THERAPY UNSPECIFIED] [Suspect]
     Indication: BREAST CANCER
     Route: 042
     Dates: start: 20060908, end: 20060908
  3. GRANISETRON HYDROCHLORIDE [Concomitant]
     Indication: CHEMOTHERAPY
     Route: 042
     Dates: start: 20060908
  4. [THERAPY UNSPECIFIED] [Suspect]
     Route: 048
     Dates: start: 20060908, end: 20060908
  5. DEXAMETHASONE [Suspect]
     Indication: CHEMOTHERAPY
     Route: 048
     Dates: start: 20060908, end: 20060909

REACTIONS (4)
  - BLADDER PAIN [None]
  - CYSTITIS [None]
  - DIARRHOEA [None]
  - FATIGUE [None]
